FAERS Safety Report 10398202 (Version 1)
Quarter: 2014Q3

REPORT INFORMATION
  Report Type: Spontaneous
  Country: FI (occurrence: None)
  Receive Date: 20140818
  Receipt Date: 20140818
  Transmission Date: 20150326
  Serious: Yes (Death, Other)
  Sender: FDA-Public Use
  Company Number: KAD201408-000925

PATIENT

DRUGS (4)
  1. ETOPOSIDE (ETOPOSIDE) [Suspect]
     Active Substance: ETOPOSIDE
     Indication: BRAIN STEM GLIOMA
     Dosage: -STOPPED  THERAPY DATES
  2. TOPOTECAN [Suspect]
     Active Substance: TOPOTECAN\TOPOTECAN HYDROCHLORIDE
     Indication: BRAIN STEM GLIOMA
     Dosage: INFUSION , 0.5 MG/ME2,
     Route: 042
  3. THALIDOMIDE (THALIDOMIDE) [Suspect]
     Active Substance: THALIDOMIDE
     Indication: BRAIN STEM GLIOMA
     Dosage: ORAL   - STOPPED THERAPY
     Route: 048
  4. CELECOXIB (CELECOXIB) [Suspect]
     Active Substance: CELECOXIB
     Indication: BRAIN STEM GLIOMA

REACTIONS (2)
  - Brain stem glioma [None]
  - Neoplasm progression [None]
